FAERS Safety Report 15256528 (Version 1)
Quarter: 2018Q3

REPORT INFORMATION
  Report Type: Spontaneous
  Country: PL (occurrence: PL)
  Receive Date: 20180808
  Receipt Date: 20180808
  Transmission Date: 20181010
  Serious: Yes (Other)
  Sender: FDA-Public Use
  Company Number: PL-ROCHE-2161347

PATIENT
  Sex: Female

DRUGS (1)
  1. HERCEPTIN [Suspect]
     Active Substance: TRASTUZUMAB
     Indication: HER-2 POSITIVE BREAST CANCER
     Route: 065
     Dates: start: 201706, end: 201806

REACTIONS (5)
  - Neoplasm [Unknown]
  - Metastases to lymph nodes [Unknown]
  - Drug ineffective [Unknown]
  - Metastases to lung [Unknown]
  - Weight increased [Unknown]
